FAERS Safety Report 14413551 (Version 2)
Quarter: 2018Q1

REPORT INFORMATION
  Report Type: Report from Study
  Country: US (occurrence: US)
  Receive Date: 20180119
  Receipt Date: 20180207
  Transmission Date: 20180509
  Serious: Yes (Hospitalization)
  Sender: FDA-Public Use
  Company Number: US-EISAI MEDICAL RESEARCH-EC-2018-035207

PATIENT
  Age: 60 Year
  Sex: Male
  Weight: 87.8 kg

DRUGS (14)
  1. LENVATINIB [Suspect]
     Active Substance: LENVATINIB
     Dosage: DOSE REDUCED (DOSE LEVEL -1)
     Route: 048
     Dates: start: 20170906, end: 20171114
  2. ACETAMINOPHEN. [Concomitant]
     Active Substance: ACETAMINOPHEN
  3. METFORMIN [Concomitant]
     Active Substance: METFORMIN HYDROCHLORIDE
  4. LEVOTHYROXINE. [Concomitant]
     Active Substance: LEVOTHYROXINE
  5. CARVEDILOL. [Concomitant]
     Active Substance: CARVEDILOL
  6. ENOXAPARIN [Concomitant]
     Active Substance: ENOXAPARIN
  7. LENVATINIB [Suspect]
     Active Substance: LENVATINIB
     Indication: PAPILLARY THYROID CANCER
     Dosage: BLINDED DOSE 24 MG OR 18 MG
     Route: 048
     Dates: start: 20170727, end: 20170905
  8. ALLOPURINOL. [Concomitant]
     Active Substance: ALLOPURINOL
  9. COLCHICINE. [Concomitant]
     Active Substance: COLCHICINE
  10. ATORVASTATIN [Concomitant]
     Active Substance: ATORVASTATIN
  11. GLIMEPIRIDE. [Concomitant]
     Active Substance: GLIMEPIRIDE
  12. TRAMADOL. [Concomitant]
     Active Substance: TRAMADOL
  13. LENVATINIB [Suspect]
     Active Substance: LENVATINIB
     Dosage: DOSE REDUCED (DOSE LEVEL -2)
     Route: 048
     Dates: start: 20171208, end: 20180104
  14. HYDRALAZINE [Concomitant]
     Active Substance: HYDRALAZINE HYDROCHLORIDE

REACTIONS (1)
  - Embolism [Recovered/Resolved with Sequelae]

NARRATIVE: CASE EVENT DATE: 20171114
